FAERS Safety Report 5868927-1 (Version None)
Quarter: 2008Q3

REPORT INFORMATION
  Report Type: 
  Country: None (occurrence: None)
  Receive Date: 20080903
  Receipt Date: 20080826
  Transmission Date: 20090109
  Serious: Yes (Life-Threatening)
  Sender: FDA-Public Use
  Company Number: RU-MERCK-0808RUS00001

PATIENT
  Age: 10 Year
  Sex: Female
  Weight: 54 kg

DRUGS (4)
  1. PRIMAXIN [Suspect]
     Indication: ENDOCARDITIS
     Route: 041
     Dates: start: 20080715, end: 20080727
  2. CURANTYL [Concomitant]
     Indication: ENDOCARDITIS
     Route: 048
  3. THROMBO ASS [Concomitant]
     Indication: ENDOCARDITIS
     Route: 048
  4. DICLOFENAC [Concomitant]
     Indication: ENDOCARDITIS
     Route: 048

REACTIONS (3)
  - ANAEMIA [None]
  - COAGULOPATHY [None]
  - LIVER DISORDER [None]
